FAERS Safety Report 5265904-9 (Version None)
Quarter: 2007Q1

REPORT INFORMATION
  Report Type: 
  Country: None (occurrence: None)
  Receive Date: 20070315
  Receipt Date: 20070305
  Transmission Date: 20070707
  Serious: Yes (Hospitalization, Other)
  Sender: FDA-Public Use
  Company Number: PHEH2007US02837

PATIENT
  Age: 58 Year
  Sex: Female

DRUGS (9)
  1. VIVELLE [Suspect]
     Indication: HORMONE REPLACEMENT THERAPY
     Route: 062
     Dates: start: 19850101, end: 19950101
  2. PREMARIN [Suspect]
     Dosage: 10 MG, UNK
     Route: 048
     Dates: end: 19960801
  3. PROVERA [Suspect]
     Dosage: 0.625 MG, UNK
     Route: 048
     Dates: end: 19960801
  4. CYCRIN [Suspect]
     Indication: HORMONE REPLACEMENT THERAPY
     Dates: start: 19850101, end: 19950101
  5. CURRETAB [Suspect]
     Indication: HORMONE REPLACEMENT THERAPY
     Dates: start: 19850101, end: 19950101
  6. ESTRACE [Suspect]
     Indication: HORMONE REPLACEMENT THERAPY
     Dates: start: 19850101, end: 19950101
  7. MPA [Suspect]
     Indication: HORMONE REPLACEMENT THERAPY
     Dates: start: 19850101, end: 19950101
  8. ESTRATEST [Suspect]
     Indication: HORMONE REPLACEMENT THERAPY
     Dates: start: 19850101, end: 19950101
  9. PREMPRO [Suspect]
     Indication: HORMONE REPLACEMENT THERAPY
     Dosage: 0.625/25 MG, UNK
     Dates: start: 19960801, end: 20020801

REACTIONS (37)
  - ARTHRALGIA [None]
  - ATRIAL FIBRILLATION [None]
  - ATRIAL FLUTTER [None]
  - ATRIAL HYPERTROPHY [None]
  - BACK PAIN [None]
  - BIOPSY BREAST ABNORMAL [None]
  - BREAST CANCER FEMALE [None]
  - BREAST CANCER STAGE IV [None]
  - BREAST HYPERPLASIA [None]
  - CARDIAC PACEMAKER INSERTION [None]
  - CEREBROVASCULAR ACCIDENT [None]
  - CHOLECYSTECTOMY [None]
  - CHOLELITHIASIS [None]
  - CORONARY ARTERY BYPASS [None]
  - DIABETES MELLITUS [None]
  - DILATATION VENTRICULAR [None]
  - DIZZINESS [None]
  - ECHOCARDIOGRAM [None]
  - FALL [None]
  - FATIGUE [None]
  - FIBROCYSTIC BREAST DISEASE [None]
  - HEAD INJURY [None]
  - HEMIPARESIS [None]
  - HOMICIDAL IDEATION [None]
  - INFARCTION [None]
  - LYMPHOEDEMA [None]
  - MITRAL VALVE INCOMPETENCE [None]
  - OEDEMA PERIPHERAL [None]
  - PAIN [None]
  - PULMONARY HYPERTENSION [None]
  - SCAN MYOCARDIAL PERFUSION ABNORMAL [None]
  - SUPRAVENTRICULAR TACHYCARDIA [None]
  - SURGERY [None]
  - TREATMENT NONCOMPLIANCE [None]
  - TRICUSPID VALVE INCOMPETENCE [None]
  - URINARY TRACT INFECTION [None]
  - VENTRICULAR DYSFUNCTION [None]
